FAERS Safety Report 21733681 (Version 1)
Quarter: 2022Q4

REPORT INFORMATION
  Report Type: Spontaneous
  Country: US (occurrence: None)
  Receive Date: 20221215
  Receipt Date: 20221215
  Transmission Date: 20230113
  Serious: Yes (Hospitalization)
  Sender: FDA-Public Use
  Company Number: None

PATIENT
  Age: 59 Year
  Sex: Male

DRUGS (6)
  1. MYCOPHENOLIC ACID [Suspect]
     Active Substance: MYCOPHENOLIC ACID
     Indication: Renal transplant
     Dosage: FREQUENCY : TWICE A DAY;?
     Route: 048
     Dates: start: 20200320
  2. ENVARSUS XR [Concomitant]
     Active Substance: TACROLIMUS
     Dates: start: 20200320
  3. PREDNISONE [Concomitant]
     Active Substance: PREDNISONE
     Dates: start: 20200508
  4. Sodium bicarbonate 650mg [Concomitant]
     Dates: start: 20200917
  5. TAMSULOSIN [Concomitant]
     Active Substance: TAMSULOSIN
     Dates: start: 20200917
  6. vitamin D 50,000 units [Concomitant]
     Dates: start: 20200917

REACTIONS (1)
  - Hospitalisation [None]

NARRATIVE: CASE EVENT DATE: 20221214
